FAERS Safety Report 8428280-6 (Version None)
Quarter: 2012Q2

REPORT INFORMATION
  Report Type: 
  Country: None (occurrence: None)
  Receive Date: 20120611
  Receipt Date: 20120601
  Transmission Date: 20120825
  Serious: Yes (Hospitalization, Other)
  Sender: FDA-Public Use
  Company Number: US-MERCK-1206USA00491

PATIENT
  Age: 35 Year
  Sex: Female

DRUGS (4)
  1. INSULIN [Concomitant]
     Route: 065
  2. DEXAMETHASONE [Suspect]
     Route: 065
  3. ZOFRAN [Suspect]
     Route: 065
  4. FOSAPREPITANT DIMEGLUMINE [Suspect]
     Indication: PREMEDICATION
     Dosage: 150MG ONCE - RECEIVED ONLY 5MLS
     Route: 041
     Dates: start: 20120529, end: 20120529

REACTIONS (5)
  - UNRESPONSIVE TO STIMULI [None]
  - INCONTINENCE [None]
  - BLOOD SODIUM DECREASED [None]
  - PULSE PRESSURE DECREASED [None]
  - DRUG DOSE OMISSION [None]
